FAERS Safety Report 10747199 (Version 2)
Quarter: 2015Q1

REPORT INFORMATION
  Report Type: Spontaneous
  Country: FI (occurrence: FI)
  Receive Date: 20150129
  Receipt Date: 20150210
  Transmission Date: 20150721
  Serious: Yes (Other)
  Sender: FDA-Public Use
  Company Number: FI-AMGEN-FINSP2015006873

PATIENT
  Sex: Female
  Weight: 1.58 kg

DRUGS (4)
  1. ENBREL [Suspect]
     Active Substance: ETANERCEPT
     Indication: EXPOSURE DURING PREGNANCY
     Dosage: UNK
     Route: 064
  2. INFLIXIMAB [Suspect]
     Active Substance: INFLIXIMAB
     Dosage: UNK
     Route: 065
  3. PREDNISOLONE. [Suspect]
     Active Substance: PREDNISOLONE
     Indication: EXPOSURE DURING PREGNANCY
     Dosage: 40 MG, UNK
     Route: 064
  4. INFLIXIMAB [Suspect]
     Active Substance: INFLIXIMAB
     Indication: EXPOSURE DURING PREGNANCY
     Dosage: UNK
     Route: 064

REACTIONS (4)
  - Small for dates baby [Unknown]
  - Apgar score low [Unknown]
  - Premature baby [Unknown]
  - Maternal exposure during pregnancy [Unknown]
